FAERS Safety Report 9920044 (Version 2)
Quarter: 2014Q1

REPORT INFORMATION
  Report Type: Report from Study
  Country: PR (occurrence: PR)
  Receive Date: 20140224
  Receipt Date: 20140310
  Transmission Date: 20141002
  Serious: Yes (Hospitalization, Other)
  Sender: FDA-Public Use
  Company Number: PR-ABBVIE-14P-131-1203323-00

PATIENT
  Sex: Female
  Weight: 67.65 kg

DRUGS (15)
  1. ZANTAC [Concomitant]
     Indication: GASTRITIS
     Route: 048
     Dates: start: 1970
  2. GAVISCON [Concomitant]
     Indication: GASTRITIS
     Route: 048
     Dates: start: 1970
  3. HUMIRA [Suspect]
     Indication: PSORIASIS
     Route: 058
     Dates: start: 2008, end: 2008
  4. HUMIRA [Suspect]
     Route: 058
     Dates: start: 20140127
  5. UNKNOWN MEDICATION (NON-ABBVIE) [Concomitant]
     Indication: THYROID DISORDER
  6. SYNTHROID [Concomitant]
     Indication: THYROID DISORDER
     Route: 048
     Dates: start: 1980
  7. DIOVAN [Concomitant]
     Indication: HYPERTENSION
     Route: 048
     Dates: start: 2008
  8. METFORMIN [Concomitant]
     Indication: DIABETES MELLITUS
     Route: 048
     Dates: start: 2007
  9. LOVAZA [Concomitant]
     Indication: BLOOD CHOLESTEROL
     Route: 048
     Dates: start: 2007
  10. ISOSORBIDE [Concomitant]
     Indication: HYPERTENSION
     Route: 048
     Dates: start: 2008
  11. ZETIA [Concomitant]
     Indication: BLOOD TRIGLYCERIDES
     Route: 048
     Dates: start: 2008
  12. NEURONTIN [Concomitant]
     Indication: NEUROPATHY PERIPHERAL
     Route: 048
     Dates: start: 1970, end: 201402
  13. PAMELOR [Concomitant]
     Indication: NEUROPATHY PERIPHERAL
     Route: 048
     Dates: start: 201402
  14. PLAVIX [Concomitant]
     Indication: HYPERTENSION
     Route: 048
     Dates: start: 2008
  15. VITAMIN C [Concomitant]
     Indication: VITAMIN SUPPLEMENTATION
     Route: 048
     Dates: start: 1970

REACTIONS (15)
  - Haemorrhage [Unknown]
  - Loss of consciousness [Recovered/Resolved]
  - Injection site pain [Unknown]
  - Psoriasis [Not Recovered/Not Resolved]
  - Injection site haematoma [Not Recovered/Not Resolved]
  - Injection site inflammation [Recovered/Resolved]
  - Injection site erythema [Recovering/Resolving]
  - Injection site warmth [Recovered/Resolved]
  - Weight decreased [Not Recovered/Not Resolved]
  - Decreased appetite [Not Recovered/Not Resolved]
  - Headache [Recovered/Resolved]
  - Stress [Recovering/Resolving]
  - Pruritus [Not Recovered/Not Resolved]
  - Blood cholesterol increased [Recovered/Resolved]
  - Haemorrhagic stroke [Recovering/Resolving]
